FAERS Safety Report 24534054 (Version 5)
Quarter: 2025Q3

REPORT INFORMATION
  Report Type: Spontaneous
  Country: US (occurrence: US)
  Receive Date: 20241022
  Receipt Date: 20250826
  Transmission Date: 20251020
  Serious: Yes (Hospitalization, Other)
  Sender: BRISTOL-MYERS SQUIBB COMPANY
  Company Number: US-BRISTOL-MYERS SQUIBB COMPANY-2024-165759

PATIENT
  Age: 83 Year
  Sex: Male
  Weight: 94.35 kg

DRUGS (2)
  1. REVLIMID [Suspect]
     Active Substance: LENALIDOMIDE
     Indication: 5q minus syndrome
     Route: 048
  2. REVLIMID [Suspect]
     Active Substance: LENALIDOMIDE
     Route: 048

REACTIONS (7)
  - Cough [Recovered/Resolved]
  - Epistaxis [Unknown]
  - Fatigue [Unknown]
  - Product distribution issue [Unknown]
  - Therapy interrupted [Unknown]
  - Diarrhoea [Unknown]
  - Pneumonia [Recovering/Resolving]
